FAERS Safety Report 25137017 (Version 1)
Quarter: 2025Q1

REPORT INFORMATION
  Report Type: Spontaneous
  Country: JP (occurrence: JP)
  Receive Date: 20250328
  Receipt Date: 20250328
  Transmission Date: 20250409
  Serious: Yes (Hospitalization)
  Sender: ELI LILLY AND COMPANY
  Company Number: JP-NShinyaku-EVA202504031ZZLILLY

PATIENT
  Age: 41 Year
  Sex: Male

DRUGS (26)
  1. TADALAFIL [Suspect]
     Active Substance: TADALAFIL
     Indication: Pulmonary arterial hypertension
     Route: 048
     Dates: start: 1998
  2. OPSUMIT [Concomitant]
     Active Substance: MACITENTAN
     Dosage: 10 MG, DAILY
     Route: 048
     Dates: start: 20160901
  3. TREPROSTINIL [Concomitant]
     Active Substance: TREPROSTINIL
     Dosage: 50 MG, DAILY
     Route: 048
     Dates: start: 201211
  4. TREPROSTINIL [Concomitant]
     Active Substance: TREPROSTINIL
     Dates: start: 20160901
  5. FLOLAN [Concomitant]
     Active Substance: EPOPROSTENOL SODIUM
     Route: 042
     Dates: start: 1998
  6. FLOLAN [Concomitant]
     Active Substance: EPOPROSTENOL SODIUM
     Dates: end: 20170204
  7. BOSENTAN [Concomitant]
     Active Substance: BOSENTAN
     Route: 048
     Dates: start: 1998
  8. DIGOXIN [Concomitant]
     Active Substance: DIGOXIN
     Dosage: 0.25 MG, DAILY
     Dates: start: 20120619
  9. DIGOXIN [Concomitant]
     Active Substance: DIGOXIN
     Dates: start: 20120619
  10. LASIX [Concomitant]
     Active Substance: FUROSEMIDE
     Dates: end: 20120618
  11. LASIX [Concomitant]
     Active Substance: FUROSEMIDE
     Dates: start: 20120619
  12. TORSEMIDE [Concomitant]
     Active Substance: TORSEMIDE
     Dates: end: 20120618
  13. TORSEMIDE [Concomitant]
     Active Substance: TORSEMIDE
     Dates: start: 20120619, end: 20170203
  14. TORSEMIDE [Concomitant]
     Active Substance: TORSEMIDE
     Dates: start: 20170204
  15. TRICHLORMETHIAZIDE [Concomitant]
     Active Substance: TRICHLORMETHIAZIDE
     Dates: end: 20120618
  16. TRICHLORMETHIAZIDE [Concomitant]
     Active Substance: TRICHLORMETHIAZIDE
     Dates: start: 20120619, end: 20160831
  17. TRICHLORMETHIAZIDE [Concomitant]
     Active Substance: TRICHLORMETHIAZIDE
     Dates: start: 20160901, end: 20170203
  18. TRICHLORMETHIAZIDE [Concomitant]
     Active Substance: TRICHLORMETHIAZIDE
     Dates: start: 20170204, end: 20180801
  19. TRICHLORMETHIAZIDE [Concomitant]
     Active Substance: TRICHLORMETHIAZIDE
     Dates: start: 20180802
  20. EPLERENONE [Concomitant]
     Active Substance: EPLERENONE
  21. EPLERENONE [Concomitant]
     Active Substance: EPLERENONE
     Dates: start: 20170220
  22. SPIRONOLACTONE [Concomitant]
     Active Substance: SPIRONOLACTONE
  23. SPIRONOLACTONE [Concomitant]
     Active Substance: SPIRONOLACTONE
     Dates: start: 20201109
  24. WARFARIN [Concomitant]
     Active Substance: WARFARIN
     Dates: end: 20120618
  25. WARFARIN [Concomitant]
     Active Substance: WARFARIN
     Dates: start: 20120619, end: 20160831
  26. WARFARIN [Concomitant]
     Active Substance: WARFARIN
     Dates: start: 20170204

REACTIONS (5)
  - Device related infection [Unknown]
  - Device related infection [Unknown]
  - Device related infection [Unknown]
  - Pneumonia [Unknown]
  - Cardiac failure congestive [Unknown]

NARRATIVE: CASE EVENT DATE: 20060301
